FAERS Safety Report 12100783 (Version 5)
Quarter: 2016Q4

REPORT INFORMATION
  Report Type: Spontaneous
  Country: US (occurrence: US)
  Receive Date: 20160222
  Receipt Date: 20161219
  Transmission Date: 20170206
  Serious: Yes (Life-Threatening, Congenital Anomaly, Other)
  Sender: FDA-Public Use
  Company Number: PHEH2016US004168

PATIENT
  Sex: Male

DRUGS (5)
  1. ZOFRAN [Suspect]
     Active Substance: ONDANSETRON HYDROCHLORIDE
     Indication: FOETAL EXPOSURE DURING PREGNANCY
     Route: 064
  2. ONDANSETRON HYDROCHLORIDE. [Suspect]
     Active Substance: ONDANSETRON HYDROCHLORIDE
     Indication: FOETAL EXPOSURE DURING PREGNANCY
     Route: 064
  3. ONDANSETRON. [Suspect]
     Active Substance: ONDANSETRON
     Indication: FOETAL EXPOSURE DURING PREGNANCY
     Dosage: MOTHER DOSE: 4 MG, QID
     Route: 064
  4. ONDANSETRON [Suspect]
     Active Substance: ONDANSETRON
     Indication: FOETAL EXPOSURE DURING PREGNANCY
     Dosage: MOTHER DOSE: 4 MG, TID
     Route: 064
  5. ZOFRAN ODT [Suspect]
     Active Substance: ONDANSETRON HYDROCHLORIDE
     Indication: FOETAL EXPOSURE DURING PREGNANCY
     Dosage: MOTHER^S DOSE: 2 DF, PRN
     Route: 064

REACTIONS (16)
  - Foetal exposure during pregnancy [Unknown]
  - Tethered cord syndrome [Unknown]
  - Congenital anomaly [Unknown]
  - Heart disease congenital [Unknown]
  - Rectourethral fistula [Unknown]
  - Emotional distress [Unknown]
  - Anal atresia [Unknown]
  - Atrial septal defect [Unknown]
  - Anxiety [Unknown]
  - Pain [Unknown]
  - Lymphoid tissue hyperplasia [Unknown]
  - Congenital scoliosis [Unknown]
  - Pyelocaliectasis [Unknown]
  - Gastrointestinal infection [Unknown]
  - Injury [Unknown]
  - Anhedonia [Unknown]
